FAERS Safety Report 5375500-0 (Version None)
Quarter: 2007Q2

REPORT INFORMATION
  Report Type: 
  Country: None (occurrence: None)
  Receive Date: 20070629
  Receipt Date: 20070621
  Transmission Date: 20071010
  Serious: Yes (Disabling)
  Sender: FDA-Public Use
  Company Number: FR-ABBOTT-07P-056-0372286-00

PATIENT
  Sex: Female

DRUGS (4)
  1. SEVORANE [Suspect]
     Indication: GENERAL ANAESTHESIA
     Dosage: 8% IN O2
     Route: 055
     Dates: start: 20070503, end: 20070503
  2. SEVORANE [Suspect]
     Dates: start: 20070505, end: 20070505
  3. SUFENTANIL CITRATE [Suspect]
     Indication: GENERAL ANAESTHESIA
     Route: 042
     Dates: start: 20070503, end: 20070503
  4. CISATRACURIUM BESILATE [Suspect]
     Indication: GENERAL ANAESTHESIA
     Dates: start: 20070503, end: 20070503

REACTIONS (2)
  - CLONUS [None]
  - INJURY [None]
